FAERS Safety Report 4676767-4 (Version None)
Quarter: 2005Q2

REPORT INFORMATION
  Report Type: 
  Country: None (occurrence: None)
  Receive Date: 20050527
  Receipt Date: 20050302
  Transmission Date: 20051028
  Serious: Yes (Hospitalization)
  Sender: FDA-Public Use
  Company Number: FR-MERCK-0503FRA00013

PATIENT
  Age: 70 Year
  Sex: Male

DRUGS (8)
  1. ZOCOR [Suspect]
     Indication: HYPERCHOLESTEROLAEMIA
     Route: 048
     Dates: end: 20050223
  2. INSULIN [Concomitant]
     Indication: DIABETES MELLITUS
     Route: 058
  3. ASPIRIN LYSINE [Concomitant]
     Indication: CORONARY ARTERY INSUFFICIENCY
     Route: 048
  4. FUROSEMIDE [Concomitant]
     Route: 048
  5. ACEBUTOLOL HYDROCHLORIDE [Concomitant]
     Route: 048
  6. CLONAZEPAM [Concomitant]
     Route: 048
  7. NICORANDIL [Concomitant]
     Route: 048
  8. OMEPRAZOLE [Concomitant]
     Route: 048

REACTIONS (3)
  - BLOOD CREATINE PHOSPHOKINASE INCREASED [None]
  - MYALGIA [None]
  - PROSTATE CANCER METASTATIC [None]
